FAERS Safety Report 20942677 (Version 1)
Quarter: 2022Q2

REPORT INFORMATION
  Report Type: Spontaneous
  Country: US (occurrence: US)
  Receive Date: 20220610
  Receipt Date: 20220610
  Transmission Date: 20220721
  Serious: No
  Sender: FDA-Public Use
  Company Number: US-UNITED THERAPEUTICS-UNT-2022-012452

PATIENT
  Sex: Male

DRUGS (2)
  1. REMODULIN [Suspect]
     Active Substance: TREPROSTINIL
     Indication: Pulmonary arterial hypertension
     Dosage: UNK, CONTINUING
     Route: 058
     Dates: start: 20220601
  2. REMODULIN [Suspect]
     Active Substance: TREPROSTINIL
     Dosage: 0.0748 ?G/KG, CONTINUING
     Route: 058

REACTIONS (4)
  - Toothache [Unknown]
  - Seborrhoea [Unknown]
  - Rash [Unknown]
  - Flushing [Unknown]
